FAERS Safety Report 7369025-0 (Version None)
Quarter: 2011Q1

REPORT INFORMATION
  Report Type: 
  Country: None (occurrence: None)
  Receive Date: 20110323
  Receipt Date: 20110311
  Transmission Date: 20110831
  Serious: Yes (Hospitalization, Other)
  Sender: FDA-Public Use
  Company Number: IN-PAR PHARMACEUTICAL, INC-2010SCPR002358

PATIENT
  Age: 32 Year
  Sex: Male

DRUGS (3)
  1. DISULFIRAM [Suspect]
     Dosage: 250 MG, ONCE DAILY FOR NEXT 25 DAYS
     Route: 065
  2. DISULFIRAM [Suspect]
     Indication: ALCOHOLISM
     Dosage: 250 MG, BID FOR INITIAL 20 DAYS
     Route: 065
  3. ALCOHOL [Suspect]
     Indication: PRODUCT USED FOR UNKNOWN INDICATION
     Dosage: UNK
     Route: 065

REACTIONS (5)
  - PARAESTHESIA [None]
  - VIITH NERVE PARALYSIS [None]
  - ALCOHOL INTERACTION [None]
  - VOCAL CORD PARALYSIS [None]
  - NEUROPATHY PERIPHERAL [None]
